FAERS Safety Report 5153863-9 (Version None)
Quarter: 2006Q4

REPORT INFORMATION
  Report Type: 
  Country: None (occurrence: None)
  Receive Date: 20061120
  Receipt Date: 20061109
  Transmission Date: 20070319
  Serious: Yes (Other)
  Sender: FDA-Public Use
  Company Number: US-JNJFOC-20061103226

PATIENT
  Sex: Female
  Weight: 62.6 kg

DRUGS (7)
  1. FENTANYL TRANSDERMAL SYSTEM [Suspect]
     Indication: COMPLEX REGIONAL PAIN SYNDROME
     Route: 062
  2. DURAGESIC-100 [Suspect]
     Route: 062
  3. DURAGESIC-100 [Suspect]
     Route: 062
  4. DURAGESIC-100 [Suspect]
     Indication: COMPLEX REGIONAL PAIN SYNDROME
     Route: 062
  5. VICODIN [Concomitant]
     Indication: BREAKTHROUGH PAIN
     Dosage: 5/500MG, 2 TABLETS 4 TIMES A DAY AS NEEDED
     Route: 048
  6. PAXIL [Concomitant]
     Indication: ANXIETY
     Route: 048
  7. PAXIL [Concomitant]
     Indication: DEPRESSION
     Dosage: AT NIGHT
     Route: 048

REACTIONS (6)
  - ACNE [None]
  - APPLICATION SITE SCAR [None]
  - COMPLEX REGIONAL PAIN SYNDROME [None]
  - SKIN DISCOLOURATION [None]
  - SKIN DISORDER [None]
  - SKIN IRRITATION [None]
